FAERS Safety Report 8243229-7 (Version None)
Quarter: 2012Q1

REPORT INFORMATION
  Report Type: 
  Country: None (occurrence: None)
  Receive Date: 20120329
  Receipt Date: 20120322
  Transmission Date: 20120608
  Serious: Yes (Other)
  Sender: FDA-Public Use
  Company Number: IT-ABBOTT-12P-087-0908437-00

PATIENT
  Age: 60 Year
  Sex: Female

DRUGS (1)
  1. MESALAMINE [Suspect]
     Indication: PRODUCT USED FOR UNKNOWN INDICATION
     Dosage: 1600-2400MG/D

REACTIONS (1)
  - TRAUMATIC LUNG INJURY [None]
